FAERS Safety Report 15760521 (Version 1)
Quarter: 2018Q4

REPORT INFORMATION
  Report Type: Spontaneous
  Country: US (occurrence: US)
  Receive Date: 20181226
  Receipt Date: 20181226
  Transmission Date: 20190205
  Serious: Yes (Other)
  Sender: FDA-Public Use
  Company Number: US-BAYER-2018-238791

PATIENT
  Age: 75 Year
  Sex: Female
  Weight: 111 kg

DRUGS (2)
  1. PAIN STOPPER EXTRA [Suspect]
     Active Substance: ACETAMINOPHEN\ASPIRIN\CAFFEINE\SALICYLAMIDE
  2. ALEVE [Suspect]
     Active Substance: NAPROXEN SODIUM
     Indication: PAIN
     Dosage: 2 DF, TID
     Route: 048

REACTIONS (4)
  - Loss of consciousness [Recovered/Resolved]
  - Incorrect dosage administered [None]
  - Epistaxis [Recovered/Resolved]
  - Drug ineffective [Unknown]
